FAERS Safety Report 9254840 (Version 1)
Quarter: 2013Q2

REPORT INFORMATION
  Report Type: Spontaneous
  Country: FR (occurrence: None)
  Receive Date: 20130422
  Receipt Date: 20130422
  Transmission Date: 20140414
  Serious: Yes (Hospitalization)
  Sender: FDA-Public Use
  Company Number: 1674741

PATIENT
  Age: 57 Year
  Sex: Male

DRUGS (12)
  1. DOCETAXEL [Suspect]
     Indication: PRODUCT USED FOR UNKNOWN INDICATION
     Dosage: 1 CYCLICAL, INTRAVENOUS (NOT OTHERWISE SPECIFIED)?
     Route: 042
     Dates: start: 20130311, end: 20130311
  2. FLUOROURACILE [Suspect]
     Indication: PRODUCT USED FOR UNKNOWN INDICATION
     Dosage: INTRAVENOUS (NOT OTHERWISE SPECIFIED)?
     Route: 042
     Dates: start: 20130311, end: 20130312
  3. EMEND [Suspect]
     Indication: PRODUCT USED FOR UNKNOWN INDICATION
     Dosage: 125 MG D1 THEN 80 MG D2 AND D3, UNKNOWN, ORAL
     Route: 048
     Dates: start: 20130311, end: 20130313
  4. ZOPHREN [Suspect]
     Indication: PRODUCT USED FOR UNKNOWN INDICATION
     Dates: start: 20130311, end: 20130313
  5. SOLUPRED [Suspect]
     Indication: PRODUCT USED FOR UNKNOWN INDICATION
     Dates: start: 20130311, end: 20130313
  6. (CISPLATINE) [Concomitant]
  7. (KREDEX) [Concomitant]
  8. (EUPANTOL) [Concomitant]
  9. (PRIMPERAN) [Concomitant]
  10. (KARDEGIC) [Concomitant]
  11. (TAHOR) [Concomitant]
  12. (TRIATEC) [Concomitant]

REACTIONS (4)
  - Depressed level of consciousness [None]
  - Vomiting [None]
  - Confusional state [None]
  - Leukocytosis [None]
